FAERS Safety Report 10193293 (Version 1)
Quarter: 2014Q2

REPORT INFORMATION
  Report Type: Spontaneous
  Country: US (occurrence: US)
  Receive Date: 20140524
  Receipt Date: 20140524
  Transmission Date: 20141212
  Serious: No
  Sender: FDA-Public Use
  Company Number: US-SA-2014SA013285

PATIENT
  Age: 73 Year
  Sex: Male

DRUGS (5)
  1. LANTUS SOLOSTAR [Suspect]
     Indication: TYPE 2 DIABETES MELLITUS
     Dosage: TAKEN FROM: 10 DAYS AGO DOSE:20 UNIT(S)
     Route: 051
  2. SOLOSTAR [Concomitant]
  3. JANUMET [Concomitant]
  4. GLIMEPIRIDE [Concomitant]
  5. VICTOZA [Concomitant]

REACTIONS (2)
  - Dizziness [Unknown]
  - Blood glucose decreased [Unknown]
